FAERS Safety Report 9110395 (Version 1)
Quarter: 2013Q1

REPORT INFORMATION
  Report Type: Spontaneous
  Country: US (occurrence: US)
  Receive Date: 20130219
  Receipt Date: 20130219
  Transmission Date: 20140127
  Serious: No
  Sender: FDA-Public Use
  Company Number: US-BRISTOL-MYERS SQUIBB COMPANY-16581902

PATIENT
  Age: 50 Year
  Sex: Male
  Weight: 185 kg

DRUGS (1)
  1. ORENCIA FOR INJ [Suspect]
     Indication: RHEUMATOID ARTHRITIS
     Dosage: SEVERAL MONTHS AGO,LAST INJECTION 11SEP12
     Route: 058

REACTIONS (6)
  - Mouth ulceration [Unknown]
  - Oral herpes [Unknown]
  - Back pain [Unknown]
  - Dry mouth [Unknown]
  - Headache [Unknown]
  - Infection [Unknown]
